FAERS Safety Report 7229637-1 (Version None)
Quarter: 2011Q1

REPORT INFORMATION
  Report Type: 
  Country: None (occurrence: None)
  Receive Date: 20110117
  Receipt Date: 20110104
  Transmission Date: 20110831
  Serious: Yes (Other)
  Sender: FDA-Public Use
  Company Number: PHHY2011US00591

PATIENT
  Sex: Female

DRUGS (9)
  1. GABAPENTIN [Concomitant]
  2. LEVOTHYROXINE [Concomitant]
  3. ACTONEL [Concomitant]
  4. RECLAST [Suspect]
     Dosage: 5 MG, UNK
  5. IRON [Concomitant]
  6. VITAMIN A [Concomitant]
  7. CALCIUM [Concomitant]
  8. TYLENOL [Concomitant]
  9. VITAMIN D [Concomitant]

REACTIONS (11)
  - RHEUMATOID ARTHRITIS [None]
  - SCIATICA [None]
  - MUSCULOSKELETAL STIFFNESS [None]
  - PSORIASIS [None]
  - PAIN [None]
  - MYALGIA [None]
  - DISCOMFORT [None]
  - PAIN IN EXTREMITY [None]
  - BONE PAIN [None]
  - ARTHRALGIA [None]
  - MUSCLE SPASMS [None]
